FAERS Safety Report 14797635 (Version 1)
Quarter: 2018Q2

REPORT INFORMATION
  Report Type: Spontaneous
  Country: FR (occurrence: FR)
  Receive Date: 20180424
  Receipt Date: 20180424
  Transmission Date: 20180711
  Serious: Yes (Other)
  Sender: FDA-Public Use
  Company Number: FR-MERCK KGAA-2046344

PATIENT
  Age: 45 Year
  Sex: Female

DRUGS (5)
  1. NOVOTHYROX [Suspect]
     Active Substance: LEVOTHYROXINE SODIUM
     Indication: HYPOTHYROIDISM
  2. NOCERTONE [Concomitant]
     Active Substance: OXETORONE
  3. ALPRAZOLAM. [Concomitant]
     Active Substance: ALPRAZOLAM
  4. FELDENE [Concomitant]
     Active Substance: PIROXICAM
  5. VERAPAMIL [Concomitant]
     Active Substance: VERAPAMIL HYDROCHLORIDE

REACTIONS (42)
  - Gait disturbance [None]
  - Disturbance in attention [None]
  - Loss of employment [None]
  - Tremor [None]
  - Flushing [None]
  - Irritability [None]
  - Apathy [None]
  - Feeling abnormal [None]
  - Blood prolactin increased [None]
  - Personal relationship issue [None]
  - Chest pain [None]
  - Alopecia [Recovered/Resolved]
  - Muscle spasms [None]
  - Pain [Recovered/Resolved]
  - Irritable bowel syndrome [None]
  - Haemorrhoids [None]
  - Crying [None]
  - Tachycardia [None]
  - Palpitations [Recovered/Resolved]
  - Arthralgia [None]
  - Weight increased [None]
  - Somnolence [None]
  - Myalgia [None]
  - Depression [None]
  - Irregular sleep wake rhythm disorder [Recovered/Resolved]
  - Nausea [None]
  - Migraine [None]
  - Constipation [None]
  - Fear [None]
  - Blood thyroid stimulating hormone increased [None]
  - Insomnia [None]
  - Fatigue [None]
  - Amnesia [None]
  - Acne [None]
  - Facial pain [None]
  - Walking aid user [None]
  - Loss of personal independence in daily activities [None]
  - Dizziness [None]
  - Abdominal pain [None]
  - Stress [None]
  - Loss of libido [None]
  - Social avoidant behaviour [None]

NARRATIVE: CASE EVENT DATE: 20170218
